FAERS Safety Report 20977952 (Version 2)
Quarter: 2022Q2

REPORT INFORMATION
  Report Type: Spontaneous
  Country: US (occurrence: US)
  Receive Date: 20220618
  Receipt Date: 20220624
  Transmission Date: 20220721
  Serious: Yes (Other)
  Sender: FDA-Public Use
  Company Number: CID000000000025582

PATIENT
  Sex: Female

DRUGS (4)
  1. CLONAZEPAM [Suspect]
     Active Substance: CLONAZEPAM
     Indication: Bipolar disorder
     Dosage: 4 MILLIGRAM DAILY; DOSE: 4MG DAILY
     Route: 065
  2. CLONAZEPAM [Suspect]
     Active Substance: CLONAZEPAM
     Dosage: 8 MILLIGRAM DAILY; DOSE: 8 MG DAILY
     Route: 065
     Dates: start: 2022
  3. METOPROLOL SUCCINATE [Suspect]
     Active Substance: METOPROLOL SUCCINATE
     Indication: Angina pectoris
     Dosage: 200 MILLIGRAM DAILY; DOSE: 200 MG DAILY
     Route: 065
  4. METOPROLOL SUCCINATE [Suspect]
     Active Substance: METOPROLOL SUCCINATE
     Dosage: 400 MILLIGRAM DAILY; DOSE: 400 MG PER DAY (4 TABLET), 100 MG STRENGTH)
     Route: 065
     Dates: start: 2022

REACTIONS (11)
  - Angina pectoris [Unknown]
  - Sinus tachycardia [Unknown]
  - Palpitations [Unknown]
  - Hypertension [Unknown]
  - Drug ineffective [Unknown]
  - Product prescribing issue [Unknown]
  - Product prescribing error [Unknown]
  - Overdose [Unknown]
  - Therapeutic product effect incomplete [Unknown]
  - Anxiety [Unknown]
  - Stress [Unknown]

NARRATIVE: CASE EVENT DATE: 20220101
